FAERS Safety Report 25376990 (Version 1)
Quarter: 2025Q2

REPORT INFORMATION
  Report Type: Spontaneous
  Country: EG (occurrence: EG)
  Receive Date: 20250530
  Receipt Date: 20250530
  Transmission Date: 20250717
  Serious: Yes (Death, Other)
  Sender: SANOFI AVENTIS
  Company Number: EG-SA-2025SA152705

PATIENT
  Age: 37 Year
  Sex: Female
  Weight: 75 kg

DRUGS (5)
  1. ENOXAPARIN SODIUM [Suspect]
     Active Substance: ENOXAPARIN SODIUM
     Indication: Thrombosis prophylaxis
     Dosage: 40 MG, QD(40 MG EVERY 24 HOUR)
     Route: 058
     Dates: start: 20250403, end: 20250420
  2. PROTOFIX [Concomitant]
  3. JECTACORTIN [Concomitant]
  4. HYDROCORTISONE [Concomitant]
     Active Substance: HYDROCORTISONE
  5. CLINDAMYCIN HYDROCHLORIDE [Concomitant]
     Active Substance: CLINDAMYCIN HYDROCHLORIDE

REACTIONS (3)
  - Cardiac arrest [Fatal]
  - Disease complication [Fatal]
  - Thrombocytopenia [Unknown]

NARRATIVE: CASE EVENT DATE: 20250418
